FAERS Safety Report 6966404-8 (Version None)
Quarter: 2010Q3

REPORT INFORMATION
  Report Type: 
  Country: None (occurrence: None)
  Receive Date: 20100904
  Receipt Date: 20100713
  Transmission Date: 20110219
  Serious: Yes (Hospitalization)
  Sender: FDA-Public Use
  Company Number: PHHO2010GB10246

PATIENT
  Sex: Male

DRUGS (3)
  1. AFINITOR [Suspect]
     Indication: METASTATIC RENAL CELL CARCINOMA
     Dosage: 10 MG, QD
     Route: 048
     Dates: start: 20090825, end: 20100615
  2. AFINITOR [Suspect]
     Dosage: NO TREATMENT
     Dates: start: 20100703
  3. AFINITOR [Suspect]
     Dosage: NO TREATMENT
     Dates: start: 20100704

REACTIONS (2)
  - CONFUSIONAL STATE [None]
  - URINARY TRACT INFECTION [None]
